FAERS Safety Report 5912258-8 (Version None)
Quarter: 2008Q4

REPORT INFORMATION
  Report Type: 
  Country: None (occurrence: None)
  Receive Date: 20081008
  Receipt Date: 20080930
  Transmission Date: 20090506
  Serious: Yes (Other)
  Sender: FDA-Public Use
  Company Number: B0538971A

PATIENT
  Age: 46 Year
  Sex: Female

DRUGS (3)
  1. ADARTREL [Suspect]
     Dosage: .25MG PER DAY
     Route: 065
     Dates: start: 20080916, end: 20080925
  2. VENTOLIN [Suspect]
     Indication: ASTHMA
     Route: 055
     Dates: start: 20080922, end: 20080922
  3. MULTI-VITAMINS [Concomitant]

REACTIONS (6)
  - ASTHMA [None]
  - HEADACHE [None]
  - NERVOUSNESS [None]
  - PALPITATIONS [None]
  - TREMOR [None]
  - VISION BLURRED [None]
